FAERS Safety Report 13974327 (Version 3)
Quarter: 2017Q4

REPORT INFORMATION
  Report Type: Report from Study
  Country: US (occurrence: US)
  Receive Date: 20170914
  Receipt Date: 20171027
  Transmission Date: 20180321
  Serious: Yes (Disabling, Other)
  Sender: FDA-Public Use
  Company Number: US-REGENERON PHARMACEUTICALS, INC.-2017-21838

PATIENT

DRUGS (2)
  1. EYLEA [Suspect]
     Active Substance: AFLIBERCEPT
     Dosage: LAST DOSE
     Route: 031
     Dates: start: 20170828, end: 20170828
  2. EYLEA [Suspect]
     Active Substance: AFLIBERCEPT
     Indication: NEOVASCULAR AGE-RELATED MACULAR DEGENERATION
     Dosage: PRESUMABLY 2 MG, MONTHLY, THEN Q2 MONTHS
     Route: 031
     Dates: start: 20160926

REACTIONS (4)
  - Eye pain [Recovered/Resolved]
  - Blindness transient [Recovered/Resolved]
  - Eye oedema [Recovered/Resolved]
  - Blindness transient [Recovered/Resolved]

NARRATIVE: CASE EVENT DATE: 20170828
